FAERS Safety Report 25065690 (Version 1)
Quarter: 2025Q1

REPORT INFORMATION
  Report Type: Spontaneous
  Country: AU (occurrence: AU)
  Receive Date: 20250311
  Receipt Date: 20250311
  Transmission Date: 20250409
  Serious: No
  Sender: UCB
  Company Number: AU-UCBSA-2025014052

PATIENT
  Age: 81 Year
  Sex: Male

DRUGS (2)
  1. NEUPRO [Suspect]
     Active Substance: ROTIGOTINE
     Indication: Parkinson^s disease
     Dosage: 8 MG 1 DOSAGE FORM, ONCE DAILY (QD)
     Route: 062
     Dates: start: 2016
  2. NEUPRO [Suspect]
     Active Substance: ROTIGOTINE

REACTIONS (3)
  - Product adhesion issue [Unknown]
  - Overdose [Unknown]
  - Product dose omission issue [Unknown]

NARRATIVE: CASE EVENT DATE: 20250220
